FAERS Safety Report 4845199-8 (Version None)
Quarter: 2005Q4

REPORT INFORMATION
  Report Type: 
  Country: None (occurrence: None)
  Receive Date: 20051115
  Receipt Date: 20050817
  Transmission Date: 20060501
  Serious: Yes (Hospitalization)
  Sender: FDA-Public Use
  Company Number: 414792

PATIENT
  Age: 52 Year
  Sex: Female

DRUGS (2)
  1. PEGASYS [Suspect]
     Indication: HEPATITIS C VIRUS
  2. COPEGUS [Suspect]
     Indication: HEPATITIS C VIRUS

REACTIONS (9)
  - ADVERSE EVENT [None]
  - CELLULITIS [None]
  - EYE PAIN [None]
  - EYE SWELLING [None]
  - FACIAL PAIN [None]
  - LIP PAIN [None]
  - NASAL OEDEMA [None]
  - RHINALGIA [None]
  - SWELLING FACE [None]
